FAERS Safety Report 22308391 (Version 1)
Quarter: 2023Q2

REPORT INFORMATION
  Report Type: Spontaneous
  Country: US (occurrence: None)
  Receive Date: 20230511
  Receipt Date: 20230511
  Transmission Date: 20230721
  Serious: No
  Sender: FDA-Public Use
  Company Number: US-ROCHE-3213071

PATIENT

DRUGS (3)
  1. OCREVUS [Suspect]
     Active Substance: OCRELIZUMAB
     Indication: Primary progressive multiple sclerosis
     Route: 065
  2. OCREVUS [Suspect]
     Active Substance: OCRELIZUMAB
     Indication: Relapsing-remitting multiple sclerosis
  3. CODEINE COUGH SYRUP (UNK INGREDIENTS) [Concomitant]

REACTIONS (3)
  - Oropharyngeal pain [Unknown]
  - Fatigue [Unknown]
  - Gastrointestinal disorder [Unknown]
